FAERS Safety Report 5639800-9 (Version None)
Quarter: 2008Q1

REPORT INFORMATION
  Report Type: 
  Country: None (occurrence: None)
  Receive Date: 20080225
  Receipt Date: 20080225
  Transmission Date: 20080703
  Serious: Yes (Other)
  Sender: FDA-Public Use
  Company Number: None

PATIENT
  Sex: Female

DRUGS (4)
  1. LORAZEPAM [Suspect]
     Indication: ANXIETY
     Dosage: 2 TABS QID PO
     Route: 048
     Dates: start: 20000601
  2. LORAZEPAM [Suspect]
     Indication: MAJOR DEPRESSION
     Dosage: 2 TABS QID PO
     Route: 048
     Dates: start: 20000601
  3. LORAZEPAM [Suspect]
     Indication: ANXIETY
     Dosage: 2 TABS QID PO
     Route: 048
     Dates: start: 20020101
  4. LORAZEPAM [Suspect]
     Indication: MAJOR DEPRESSION
     Dosage: 2 TABS QID PO
     Route: 048
     Dates: start: 20020101

REACTIONS (4)
  - AGITATION [None]
  - ANXIETY [None]
  - CONDITION AGGRAVATED [None]
  - THERAPEUTIC RESPONSE UNEXPECTED WITH DRUG SUBSTITUTION [None]
